FAERS Safety Report 12723214 (Version 2)
Quarter: 2016Q4

REPORT INFORMATION
  Report Type: Spontaneous
  Country: US (occurrence: US)
  Receive Date: 20160908
  Receipt Date: 20161216
  Transmission Date: 20170207
  Serious: Yes (Other)
  Sender: FDA-Public Use
  Company Number: US-TEVA-689577ACC

PATIENT
  Sex: Female
  Weight: 102.15 kg

DRUGS (1)
  1. PARAGARD T 380A [Suspect]
     Active Substance: COPPER
     Indication: CONTRACEPTION
     Dates: start: 20150526

REACTIONS (3)
  - Embedded device [Unknown]
  - Uterine perforation [Unknown]
  - Dysmenorrhoea [Not Recovered/Not Resolved]
